FAERS Safety Report 7623155-4 (Version None)
Quarter: 2011Q3

REPORT INFORMATION
  Report Type: 
  Country: None (occurrence: None)
  Receive Date: 20110720
  Receipt Date: 20110707
  Transmission Date: 20111222
  Serious: Yes (Hospitalization)
  Sender: FDA-Public Use
  Company Number: PHHY2011US61790

PATIENT
  Sex: Male

DRUGS (6)
  1. LISINOPRIL [Concomitant]
  2. MULTI-VITAMIN [Concomitant]
  3. VITAMIN B-12 [Concomitant]
  4. METFORMIN HCL [Concomitant]
  5. GLEEVEC [Suspect]
     Dosage: 800 MG/DAY
  6. GEMFIBROZIL [Concomitant]
     Dosage: UNK

REACTIONS (1)
  - MENINGITIS [None]
